FAERS Safety Report 19762889 (Version 1)
Quarter: 2021Q3

REPORT INFORMATION
  Report Type: Spontaneous
  Country: US (occurrence: US)
  Receive Date: 20210830
  Receipt Date: 20210830
  Transmission Date: 20211014
  Serious: Yes (Other)
  Sender: FDA-Public Use
  Company Number: None

PATIENT
  Age: 44 Year
  Sex: Male
  Weight: 98.1 kg

DRUGS (1)
  1. REGEN?COV [Suspect]
     Active Substance: CASIRIVIMAB\IMDEVIMAB
     Indication: COVID-19
     Dates: start: 20210827, end: 20210827

REACTIONS (9)
  - Pallor [None]
  - Flushing [None]
  - Dizziness [None]
  - Hyperhidrosis [None]
  - Blood pressure decreased [None]
  - Infusion related reaction [None]
  - Chills [None]
  - Cyanosis [None]
  - Heart rate decreased [None]

NARRATIVE: CASE EVENT DATE: 20210827
